FAERS Safety Report 15485324 (Version 2)
Quarter: 2020Q1

REPORT INFORMATION
  Report Type: Spontaneous
  Country: US (occurrence: US)
  Receive Date: 20181010
  Receipt Date: 20200226
  Transmission Date: 20200409
  Serious: No
  Sender: FDA-Public Use
  Company Number: US-ROCHE-2171793

PATIENT
  Sex: Male
  Weight: 106.69 kg

DRUGS (6)
  1. SERTRALINE HCL [Concomitant]
     Active Substance: SERTRALINE HYDROCHLORIDE
     Dosage: ONGOING: UNKNOWN
     Route: 048
     Dates: start: 20170707
  2. ALECENSA [Suspect]
     Active Substance: ALECTINIB HYDROCHLORIDE
     Indication: NEOPLASM MALIGNANT
     Dosage: 4 CAP; ONGOING: YES
     Route: 048
     Dates: start: 20171217
  3. XGEVA [Concomitant]
     Active Substance: DENOSUMAB
     Dosage: ONGOING: UNKNOWN
     Route: 058
     Dates: start: 20170807
  4. ASPIRIN EC [Concomitant]
     Active Substance: ASPIRIN
     Dosage: ONGOING: UNKNOWN
     Route: 048
     Dates: start: 20170721
  5. LEVEMIR [Concomitant]
     Active Substance: INSULIN DETEMIR
     Dosage: ONGOING: UNKNOWN
     Route: 058
     Dates: start: 20170721
  6. FLUVIRIN [INFLUENZA VACCINE INACT SAG 3V] [Concomitant]
     Dosage: ONGOING: UNKNOWN
     Route: 030

REACTIONS (2)
  - Joint swelling [Not Recovered/Not Resolved]
  - Peripheral swelling [Not Recovered/Not Resolved]
